FAERS Safety Report 11597160 (Version 1)
Quarter: 2015Q4

REPORT INFORMATION
  Report Type: Report from Study
  Country: DK (occurrence: DK)
  Receive Date: 20151006
  Receipt Date: 20151006
  Transmission Date: 20160304
  Serious: Yes (Death)
  Sender: FDA-Public Use
  Company Number: DK-ASTRAZENECA-2015SE95238

PATIENT
  Age: 49 Year
  Sex: Female
  Weight: 62 kg

DRUGS (7)
  1. TETRAHYDROCANNABINOL [Concomitant]
     Active Substance: DRONABINOL
  2. QUETIAPINE FUMARATE. [Suspect]
     Active Substance: QUETIAPINE FUMARATE
     Route: 048
  3. PREGABALIN. [Concomitant]
     Active Substance: PREGABALIN
  4. NALOXONE [Concomitant]
     Active Substance: NALOXONE
  5. METHADONE [Concomitant]
     Active Substance: METHADONE HYDROCHLORIDE
  6. ETHANOL [Concomitant]
     Active Substance: ALCOHOL
  7. MORPHINE [Suspect]
     Active Substance: MORPHINE
     Route: 065

REACTIONS (2)
  - Toxicity to various agents [Fatal]
  - Completed suicide [Fatal]
